FAERS Safety Report 9806539 (Version 2)
Quarter: 2014Q1

REPORT INFORMATION
  Report Type: Spontaneous
  Country: CL (occurrence: CL)
  Receive Date: 20140109
  Receipt Date: 20140121
  Transmission Date: 20141002
  Serious: Yes (Other)
  Sender: FDA-Public Use
  Company Number: CL-PFIZER INC-2014005784

PATIENT
  Age: 76 Year
  Sex: Female

DRUGS (4)
  1. XALATAN [Suspect]
     Indication: GLAUCOMA
     Dosage: 1 GTT (PER EYE AT NIGHT), 1X/DAY
     Route: 047
     Dates: start: 201305, end: 20140113
  2. ATORVASTATIN [Concomitant]
     Indication: BLOOD CHOLESTEROL INCREASED
     Dosage: UNK
     Dates: start: 2009
  3. ENALAPRIL [Concomitant]
     Dosage: 10 MG, 2X/DAY
     Dates: start: 2009, end: 20140113
  4. CALMOSEDAN [Concomitant]
     Dosage: 0.5 DF (1/2 TABLET AT NIGHT), 1X/DAY
     Dates: start: 2009

REACTIONS (2)
  - Blood pressure decreased [Not Recovered/Not Resolved]
  - Syncope [Recovered/Resolved]
